FAERS Safety Report 8891179 (Version 1)
Quarter: 2012Q4

REPORT INFORMATION
  Report Type: 
  Country: US (occurrence: US)
  Receive Date: 20121107
  Receipt Date: 20121107
  Transmission Date: 20130627
  Serious: Yes (Other)
  Sender: FDA-Public Use
  Company Number: US-PFIZER INC-2012278082

PATIENT
  Age: 54 Year
  Sex: Male
  Weight: 79.82 kg

DRUGS (5)
  1. LYRICA [Suspect]
     Indication: NERVE PAIN
     Dosage: 50 mg, 2x/day
     Route: 048
     Dates: start: 200901
  2. LYRICA [Suspect]
     Dosage: 75 mg, 2x/day
     Route: 048
  3. LYRICA [Suspect]
     Dosage: 100 mg, 2x/day
     Route: 048
  4. OXYCONTIN [Concomitant]
     Dosage: 40 mg, 2x/day
  5. OXYCODONE [Concomitant]
     Dosage: 5 mg, 3x/day

REACTIONS (1)
  - Intervertebral disc degeneration [Unknown]
